FAERS Safety Report 6965363-1 (Version None)
Quarter: 2010Q3

REPORT INFORMATION
  Report Type: 
  Country: None (occurrence: None)
  Receive Date: 20100903
  Receipt Date: 20100825
  Transmission Date: 20110219
  Serious: Yes (Other)
  Sender: FDA-Public Use
  Company Number: CA-JNJFOC-20100808537

PATIENT
  Sex: Female
  Weight: 80.9 kg

DRUGS (4)
  1. REMICADE [Suspect]
     Indication: CROHN'S DISEASE
  2. AMITRIPTYLINE HYDROCHLORIDE [Concomitant]
  3. CORTISONE ACETATE [Concomitant]
     Route: 050
  4. AVAPRO [Concomitant]

REACTIONS (2)
  - BACK PAIN [None]
  - RHEUMATOID ARTHRITIS [None]
